FAERS Safety Report 13576156 (Version 2)
Quarter: 2017Q3

REPORT INFORMATION
  Report Type: Spontaneous
  Country: DK (occurrence: DK)
  Receive Date: 20170524
  Receipt Date: 20170705
  Transmission Date: 20171127
  Serious: Yes (Hospitalization, Other)
  Sender: FDA-Public Use
  Company Number: DK-AUROBINDO-AUR-APL-2017-34215

PATIENT
  Age: 79 Year
  Sex: Male

DRUGS (3)
  1. METFORMIN FILM-COATED TABLET [Suspect]
     Active Substance: METFORMIN HYDROCHLORIDE
     Indication: BLOOD GLUCOSE INCREASED
     Dosage: 1-2X500MG TABLETS
     Route: 065
     Dates: start: 20150621, end: 201508
  2. PINEX                              /00020001/ [Suspect]
     Active Substance: ACETAMINOPHEN
     Indication: PAIN
     Dosage: UNK
     Route: 048
     Dates: start: 2015
  3. PANODIL [Concomitant]
     Active Substance: ACETAMINOPHEN
     Indication: ABDOMINAL PAIN UPPER
     Route: 065

REACTIONS (2)
  - Ulcer [Recovered/Resolved]
  - Gastric haemorrhage [Recovered/Resolved]
